FAERS Safety Report 10947797 (Version 2)
Quarter: 2015Q3

REPORT INFORMATION
  Report Type: Spontaneous
  Country: US (occurrence: US)
  Receive Date: 20150324
  Receipt Date: 20150721
  Transmission Date: 20151125
  Serious: Yes (Death)
  Sender: FDA-Public Use
  Company Number: US-ROCHE-1555240

PATIENT
  Age: 68 Year
  Sex: Male
  Weight: 76.73 kg

DRUGS (1)
  1. XOLAIR [Suspect]
     Active Substance: OMALIZUMAB
     Indication: ASTHMA
     Route: 058
     Dates: start: 20080118, end: 20141218

REACTIONS (1)
  - Death [Fatal]

NARRATIVE: CASE EVENT DATE: 201503
